FAERS Safety Report 7334811 (Version 3)
Quarter: 2012Q4

REPORT INFORMATION
  Report Type: Report from Study
  Country: DE (occurrence: DE)
  Receive Date: 20100329
  Receipt Date: 20120905
  Transmission Date: 20130627
  Serious: Yes (Hospitalization)
  Sender: FDA-Public Use
  Company Number: PHHO2010DE04524

PATIENT
  Age: 49 Year
  Sex: Female
  Weight: 57 kg

DRUGS (5)
  1. ZOLEDRONATE DISODIUM [Suspect]
     Indication: BREAST CANCER
     Dosage: 4 mg, Every 3 months for 2 years
     Route: 042
     Dates: start: 20100212, end: 20100517
  2. TAMOXIFEN [Suspect]
     Indication: BREAST CANCER
     Dosage: 25 mg, UNK
     Route: 048
     Dates: start: 20081018
  3. VITAMIN D [Concomitant]
  4. CALCIUM [Concomitant]
  5. CIPRALEX [Concomitant]
     Indication: DEPRESSION

REACTIONS (1)
  - Osteonecrosis [Recovered/Resolved with Sequelae]
